FAERS Safety Report 7120568-4 (Version None)
Quarter: 2010Q4

REPORT INFORMATION
  Report Type: 
  Country: None (occurrence: None)
  Receive Date: 20101119
  Receipt Date: 20101119
  Transmission Date: 20110411
  Serious: Yes (Other)
  Sender: FDA-Public Use
  Company Number: None

PATIENT
  Age: 35 Year
  Sex: Female
  Weight: 52.1637 kg

DRUGS (1)
  1. OXYCONTIN 20MG CR 20 MG PERDUE PHARMACY [Suspect]
     Indication: INTERVERTEBRAL DISC PROTRUSION
     Dosage: 20 MG 2/DAY MOUTH
     Route: 048
     Dates: start: 20101108, end: 20101112

REACTIONS (7)
  - DYSPNOEA [None]
  - HEADACHE [None]
  - HEART RATE INCREASED [None]
  - NAUSEA [None]
  - PRODUCT FORMULATION ISSUE [None]
  - TREMOR [None]
  - VOMITING [None]
